FAERS Safety Report 4295404-4 (Version None)
Quarter: 2004Q1

REPORT INFORMATION
  Report Type: 
  Country: None (occurrence: None)
  Receive Date: 20040216
  Receipt Date: 20030717
  Transmission Date: 20041129
  Serious: No
  Sender: FDA-Public Use
  Company Number: US-GLAXOSMITHKLINE-A0417889A

PATIENT
  Age: 24 Year
  Sex: Female

DRUGS (3)
  1. LAMICTAL [Suspect]
     Indication: BIPOLAR DISORDER
     Dosage: 50MGD UNKNOWN
     Route: 048
  2. EFFEXOR [Concomitant]
  3. XANAX [Concomitant]
     Dosage: .25MG TWICE PER DAY

REACTIONS (1)
  - RASH ERYTHEMATOUS [None]
